FAERS Safety Report 8232204-4 (Version None)
Quarter: 2012Q1

REPORT INFORMATION
  Report Type: 
  Country: None (occurrence: None)
  Receive Date: 20120323
  Receipt Date: 20120319
  Transmission Date: 20120608
  Serious: Yes (Hospitalization, Other)
  Sender: FDA-Public Use
  Company Number: GB-ABBOTT-12P-167-0901918-00

PATIENT
  Sex: Female

DRUGS (15)
  1. HUMIRA [Suspect]
     Indication: PSORIATIC ARTHROPATHY
     Route: 058
     Dates: start: 20120124
  2. ALBUTEROL [Concomitant]
     Indication: PRODUCT USED FOR UNKNOWN INDICATION
     Dosage: CFC-FREE INHALER 100 MICROGRAMS/PUFF
  3. NORETHINDRONE ACETATE AND ETHINYL ESTRADIOL [Concomitant]
     Indication: PRODUCT USED FOR UNKNOWN INDICATION
  4. NAPROXEN [Concomitant]
     Indication: PRODUCT USED FOR UNKNOWN INDICATION
     Dosage: 500 MG BD PC PRN
  5. AUGMENTIN '125' [Concomitant]
     Indication: PRODUCT USED FOR UNKNOWN INDICATION
     Route: 048
  6. FOLIC ACID [Concomitant]
     Indication: PRODUCT USED FOR UNKNOWN INDICATION
     Dosage: 2 TAKEN 24 HOURS BEFORE METHOTREXATE AND 2 TAKEN 24 HOURS AFTER
  7. OMEPRAZOLE [Concomitant]
     Indication: PRODUCT USED FOR UNKNOWN INDICATION
  8. LEFLUNOMIDE [Concomitant]
     Indication: PRODUCT USED FOR UNKNOWN INDICATION
  9. CALCIUM CARBONATE [Concomitant]
     Indication: PRODUCT USED FOR UNKNOWN INDICATION
     Dosage: 400UNIT/CALCIUM CARBONATE 1.25G CHEWABLE TABLETS (CALCICHEW D3 FORTE)
     Route: 048
  10. BUPRENORPHINE [Concomitant]
     Indication: PRODUCT USED FOR UNKNOWN INDICATION
     Dosage: 5 MICROGRAM/HOUR TRANSDERMAL PATCH
  11. LACRI-LUBE [Concomitant]
     Indication: PRODUCT USED FOR UNKNOWN INDICATION
     Dosage: EYE OINTMENT
  12. METHOTREXATE [Concomitant]
     Indication: PRODUCT USED FOR UNKNOWN INDICATION
     Dosage: PRE-FILLED SYRINGE 20 MG IN 0.4 ML (50 MG/ML)
     Route: 058
  13. AEROCHAMBER PLUS SPACER DEVICE STANDARD [Concomitant]
     Indication: PRODUCT USED FOR UNKNOWN INDICATION
  14. ACETAMINOPHEN [Concomitant]
     Indication: PRODUCT USED FOR UNKNOWN INDICATION
  15. TROSPIUM CHLORIDE [Concomitant]
     Indication: PRODUCT USED FOR UNKNOWN INDICATION
     Dosage: TROSPIUM CHLORIDE M/R CAPSULES

REACTIONS (18)
  - UROSEPSIS [None]
  - PYREXIA [None]
  - FEELING COLD [None]
  - ARTHRALGIA [None]
  - CHILLS [None]
  - MOBILITY DECREASED [None]
  - HEADACHE [None]
  - DYSPNOEA [None]
  - ABDOMINAL PAIN UPPER [None]
  - PLEURAL EFFUSION [None]
  - SPINAL OSTEOARTHRITIS [None]
  - CHEST X-RAY ABNORMAL [None]
  - FEELING ABNORMAL [None]
  - ABDOMINAL PAIN [None]
  - LUNG NEOPLASM [None]
  - SEPSIS [None]
  - PLEURITIC PAIN [None]
  - NEPHROLITHIASIS [None]
